FAERS Safety Report 9207898 (Version 1)
Quarter: 2013Q2

REPORT INFORMATION
  Report Type: Spontaneous
  Country: US (occurrence: US)
  Receive Date: 20130403
  Receipt Date: 20130403
  Transmission Date: 20140414
  Serious: Yes (Hospitalization)
  Sender: FDA-Public Use
  Company Number: US-ROXANE LABORATORIES, INC.-2013-RO-00427RO

PATIENT
  Age: 58 Year
  Sex: Male

DRUGS (1)
  1. AZATHIOPRINE [Suspect]

REACTIONS (2)
  - Neutrophilic dermatosis [Recovered/Resolved]
  - Erythema nodosum [Recovered/Resolved]
